FAERS Safety Report 8004874-7 (Version None)
Quarter: 2011Q4

REPORT INFORMATION
  Report Type: 
  Country: None (occurrence: None)
  Receive Date: 20111223
  Receipt Date: 20111223
  Transmission Date: 20120403
  Serious: Yes (Disabling)
  Sender: FDA-Public Use
  Company Number: None

PATIENT
  Sex: Male
  Weight: 99.79 kg

DRUGS (1)
  1. LARIAM [Suspect]
     Indication: MALARIA PROPHYLAXIS
     Dosage: ONE TABLET
     Dates: start: 19930511, end: 19930930

REACTIONS (6)
  - POST-TRAUMATIC STRESS DISORDER [None]
  - MIGRAINE [None]
  - ANXIETY [None]
  - PANIC ATTACK [None]
  - NIGHTMARE [None]
  - DEPRESSION [None]
